FAERS Safety Report 14959086 (Version 1)
Quarter: 2018Q2

REPORT INFORMATION
  Report Type: Spontaneous
  Country: US (occurrence: US)
  Receive Date: 20180531
  Receipt Date: 20180531
  Transmission Date: 20180711
  Serious: Yes (Other)
  Sender: FDA-Public Use
  Company Number: US-TEVA-2018-US-898448

PATIENT
  Age: 24 Year
  Sex: Male

DRUGS (12)
  1. TEMOZOLOMIDE. [Suspect]
     Active Substance: TEMOZOLOMIDE
     Indication: GLIOBLASTOMA
     Route: 065
  2. MEDICAL MARIJUANA [Concomitant]
     Active Substance: CANNABIS SATIVA SUBSP. INDICA TOP
     Indication: PRODUCT USED FOR UNKNOWN INDICATION
     Route: 065
  3. LEVETIRACETAM. [Suspect]
     Active Substance: LEVETIRACETAM
     Route: 065
  4. LACOSAMIDE. [Suspect]
     Active Substance: LACOSAMIDE
     Indication: PARTIAL SEIZURES WITH SECONDARY GENERALISATION
     Route: 065
  5. TEMOZOLOMIDE. [Suspect]
     Active Substance: TEMOZOLOMIDE
     Indication: GLIOBLASTOMA
     Dosage: 150 MG/M2 FOR REMAINING CYCLES (TOTAL FIVE CYCLES OF 28-DAYS EACH)
     Route: 065
  6. TOPIRAMATE. [Suspect]
     Active Substance: TOPIRAMATE
     Indication: PARTIAL SEIZURES
     Route: 065
  7. TOPIRAMATE. [Suspect]
     Active Substance: TOPIRAMATE
     Indication: PARTIAL SEIZURES
     Dosage: DOSE DECREASED
     Route: 065
  8. CANNABIS OIL [Concomitant]
     Active Substance: CANNABIS SATIVA SEED OIL
     Indication: PRODUCT USED FOR UNKNOWN INDICATION
     Route: 065
  9. PHENYTOIN. [Suspect]
     Active Substance: PHENYTOIN
     Indication: STATUS EPILEPTICUS
     Route: 065
  10. TEMOZOLOMIDE. [Suspect]
     Active Substance: TEMOZOLOMIDE
     Indication: GLIOBLASTOMA
     Dosage: 200 MG/M2 FOR CYCLES 2-3 (TOTAL FIVE CYCLES OF 28-DAYS EACH)
     Route: 065
  11. TOPIRAMATE. [Suspect]
     Active Substance: TOPIRAMATE
     Indication: PARTIAL SEIZURES
     Dosage: DOSE INCREASED
     Route: 065
  12. SERTRALINE [Concomitant]
     Active Substance: SERTRALINE HYDROCHLORIDE
     Indication: AFFECTIVE DISORDER
     Route: 065

REACTIONS (6)
  - Nervous system disorder [Not Recovered/Not Resolved]
  - Generalised tonic-clonic seizure [Unknown]
  - Partial seizures with secondary generalisation [Recovered/Resolved]
  - Status epilepticus [Recovering/Resolving]
  - Unmasking of previously unidentified disease [Not Recovered/Not Resolved]
  - Partial seizures [Recovered/Resolved]
